FAERS Safety Report 15814858 (Version 2)
Quarter: 2019Q1

REPORT INFORMATION
  Report Type: Report from Study
  Country: ES (occurrence: ES)
  Receive Date: 20190111
  Receipt Date: 20190208
  Transmission Date: 20190417
  Serious: Yes (Death)
  Sender: FDA-Public Use
  Company Number: ES-ACCORD-101372

PATIENT
  Age: 81 Year
  Sex: Male
  Weight: 65 kg

DRUGS (6)
  1. ZALTRAP [Suspect]
     Active Substance: ZIV-AFLIBERCEPT
     Indication: COLORECTAL CANCER METASTATIC
     Dosage: ALSO RECEIVED INTRAVENOUS 300MG ON 15-DEC-2018
     Route: 041
     Dates: start: 20151215, end: 20151215
  2. LOPERAMIDE [Concomitant]
     Active Substance: LOPERAMIDE
  3. LEUCOVORIN. [Suspect]
     Active Substance: LEUCOVORIN
     Indication: COLORECTAL CANCER METASTATIC
     Dosage: ALSO RECEIVED INTRAVENOUS 752MG ON 15-DEC-2018
     Route: 041
     Dates: start: 20151215, end: 20151215
  4. ATORVASTATIN [Concomitant]
     Active Substance: ATORVASTATIN
     Route: 065
  5. FLUOROURACIL. [Suspect]
     Active Substance: FLUOROURACIL
     Indication: COLORECTAL CANCER METASTATIC
     Dosage: ALSO RECEIVED INTRAVENOUS 639.2MG,3835MG ON 15-DEC-2018.
     Route: 041
     Dates: start: 20151215
  6. IRINOTECAN [Suspect]
     Active Substance: IRINOTECAN
     Indication: COLORECTAL CANCER METASTATIC
     Dosage: ALSO 287.6
     Route: 041
     Dates: start: 20151215, end: 20151215

REACTIONS (1)
  - Intestinal perforation [Fatal]

NARRATIVE: CASE EVENT DATE: 20160118
